FAERS Safety Report 12776238 (Version 1)
Quarter: 2016Q3

REPORT INFORMATION
  Report Type: Spontaneous
  Country: US (occurrence: US)
  Receive Date: 20160923
  Receipt Date: 20160923
  Transmission Date: 20161109
  Serious: No
  Sender: FDA-Public Use
  Company Number: US-ASTRAZENECA-2016SF00776

PATIENT

DRUGS (2)
  1. RHINOCORT [Suspect]
     Active Substance: BUDESONIDE
     Indication: NASAL CONGESTION
     Route: 045
  2. RHINOCORT [Suspect]
     Active Substance: BUDESONIDE
     Indication: SEASONAL ALLERGY
     Route: 045

REACTIONS (1)
  - Nasal congestion [Unknown]
